FAERS Safety Report 13653909 (Version 1)
Quarter: 2017Q2

REPORT INFORMATION
  Report Type: Spontaneous
  Country: US (occurrence: US)
  Receive Date: 20170614
  Receipt Date: 20170614
  Transmission Date: 20170830
  Serious: No
  Sender: FDA-Public Use
  Company Number: US-MAYNE PHARMA-2016MYN000821

PATIENT
  Age: 12 Year
  Sex: Female

DRUGS (1)
  1. DORYX MPC [Suspect]
     Active Substance: DOXYCYCLINE HYCLATE
     Indication: ACNE
     Dosage: .5 DF, QD
     Route: 048
     Dates: start: 20161021

REACTIONS (3)
  - Burn oesophageal [Unknown]
  - Wrong technique in product usage process [Unknown]
  - Chest pain [Unknown]

NARRATIVE: CASE EVENT DATE: 20161021
